FAERS Safety Report 23693771 (Version 1)
Quarter: 2024Q1

REPORT INFORMATION
  Report Type: Spontaneous
  Country: US (occurrence: None)
  Receive Date: 20240331
  Receipt Date: 20240331
  Transmission Date: 20240410
  Serious: Yes (Other)
  Sender: FDA-Public Use
  Company Number: None

PATIENT
  Age: 26 Year
  Sex: Female
  Weight: 67.5 kg

DRUGS (2)
  1. DUPIXENT [Suspect]
     Active Substance: DUPILUMAB
     Indication: Neurodermatitis
     Dosage: 1  INJECTIN EVERY OTHER WEEK INTRMUSCULAR?
     Route: 030
     Dates: start: 20240318, end: 20240331
  2. GABAPENTIN [Concomitant]
     Active Substance: GABAPENTIN

REACTIONS (8)
  - Abdominal pain upper [None]
  - Diarrhoea [None]
  - Bone pain [None]
  - Migraine [None]
  - Nonspecific reaction [None]
  - Constipation [None]
  - Eye pain [None]
  - Gait disturbance [None]

NARRATIVE: CASE EVENT DATE: 20240318
